FAERS Safety Report 24952063 (Version 3)
Quarter: 2025Q1

REPORT INFORMATION
  Report Type: Spontaneous
  Country: ES (occurrence: ES)
  Receive Date: 20250210
  Receipt Date: 20250218
  Transmission Date: 20250408
  Serious: Yes (Hospitalization, Other)
  Sender: BRISTOL-MYERS SQUIBB COMPANY
  Company Number: ES-IPSEN Group, Research and Development-2025-02066

PATIENT
  Age: 54 Year
  Sex: Female

DRUGS (8)
  1. NIVOLUMAB [Suspect]
     Active Substance: NIVOLUMAB
     Indication: Clear cell renal cell carcinoma
     Dosage: BIWEEKLY
     Dates: start: 202104
  2. NIVOLUMAB [Suspect]
     Active Substance: NIVOLUMAB
     Dates: start: 2021
  3. CABOMETYX [Suspect]
     Active Substance: CABOZANTINIB S-MALATE
     Indication: Clear cell renal cell carcinoma
     Dates: start: 202104
  4. CABOMETYX [Suspect]
     Active Substance: CABOZANTINIB S-MALATE
     Dates: start: 2021
  5. CABOMETYX [Suspect]
     Active Substance: CABOZANTINIB S-MALATE
  6. CABOMETYX [Suspect]
     Active Substance: CABOZANTINIB S-MALATE
  7. CABOMETYX [Suspect]
     Active Substance: CABOZANTINIB S-MALATE
  8. CABOMETYX [Suspect]
     Active Substance: CABOZANTINIB S-MALATE

REACTIONS (8)
  - Skin toxicity [Recovering/Resolving]
  - Hypothyroidism [Unknown]
  - Hepatitis [Recovered/Resolved]
  - Rash maculo-papular [Recovering/Resolving]
  - Rash [Recovered/Resolved]
  - Palmar-plantar erythrodysaesthesia syndrome [Recovering/Resolving]
  - Diarrhoea [Recovered/Resolved]
  - Malignant neoplasm progression [Unknown]

NARRATIVE: CASE EVENT DATE: 20210101
